FAERS Safety Report 12145353 (Version 1)
Quarter: 2016Q1

REPORT INFORMATION
  Report Type: Report from Study
  Country: US (occurrence: US)
  Receive Date: 20160304
  Receipt Date: 20160304
  Transmission Date: 20160526
  Serious: Yes (Other)
  Sender: FDA-Public Use
  Company Number: US-ASTELLAS-2016US007225

PATIENT
  Sex: Male

DRUGS (10)
  1. OXYCODONE [Concomitant]
     Active Substance: OXYCODONE
     Dosage: 10 MG, 2 IN 2 HOURS
     Route: 048
  2. OXYCONTIN [Concomitant]
     Active Substance: OXYCODONE HYDROCHLORIDE
     Indication: PRODUCT USED FOR UNKNOWN INDICATION
     Route: 048
  3. SUCRALFATE. [Concomitant]
     Active Substance: SUCRALFATE
     Indication: PRODUCT USED FOR UNKNOWN INDICATION
     Route: 048
  4. ERLOTINIB [Suspect]
     Active Substance: ERLOTINIB
     Indication: CHOLANGIOCARCINOMA
  5. PRILOSEC [Concomitant]
     Active Substance: OMEPRAZOLE MAGNESIUM
     Indication: PRODUCT USED FOR UNKNOWN INDICATION
     Route: 048
  6. DOCUSATE SODIUM. [Concomitant]
     Active Substance: DOCUSATE SODIUM
     Indication: PRODUCT USED FOR UNKNOWN INDICATION
     Dosage: 100 MG, THRICE DAILY, 2 DF IN AM AND 1 DF AT BEDTIME
     Route: 048
  7. VENLAFAXINE [Concomitant]
     Active Substance: VENLAFAXINE HYDROCHLORIDE
     Indication: PRODUCT USED FOR UNKNOWN INDICATION
     Route: 048
  8. ERLOTINIB [Suspect]
     Active Substance: ERLOTINIB
     Indication: CHOLANGIOCARCINOMA
     Route: 048
     Dates: start: 20120202
  9. OXYCODONE [Concomitant]
     Active Substance: OXYCODONE
     Indication: BREAKTHROUGH PAIN
     Dosage: 10 MG, 1 IN 2 HOURS
     Route: 048
  10. OXYCONTIN [Concomitant]
     Active Substance: OXYCODONE HYDROCHLORIDE
     Route: 048

REACTIONS (20)
  - Haemorrhage intracranial [Unknown]
  - Amnesia [Unknown]
  - Resting tremor [Unknown]
  - Somnolence [Unknown]
  - Constipation [Unknown]
  - Pruritus [Unknown]
  - Mood swings [Unknown]
  - Tremor [Unknown]
  - Abdominal pain [Unknown]
  - Anxiety [Unknown]
  - Nausea [Unknown]
  - Rash [Unknown]
  - Off label use [Unknown]
  - Hypoaesthesia [Unknown]
  - Asthenia [Unknown]
  - Thrombocytopenia [Unknown]
  - Petechiae [Unknown]
  - Rectal haemorrhage [Unknown]
  - Fatigue [Unknown]
  - Hallucination [Unknown]
